FAERS Safety Report 7971766-9 (Version None)
Quarter: 2011Q4

REPORT INFORMATION
  Report Type: 
  Country: None (occurrence: None)
  Receive Date: 20111212
  Receipt Date: 20111129
  Transmission Date: 20120403
  Serious: Yes (Other)
  Sender: FDA-Public Use
  Company Number: DE-MYLANLABS-2011S1024758

PATIENT
  Age: 30 Year
  Sex: Female

DRUGS (9)
  1. PANTOPRAZOLE [Suspect]
     Indication: DYSPEPSIA
     Dosage: 40 MG/DAY
     Route: 065
  2. MERCAPTOPURINE [Concomitant]
     Route: 048
  3. MESALAMINE [Concomitant]
     Route: 048
  4. PANTOPRAZOLE [Suspect]
     Dosage: 80 MG/DAY
     Route: 065
  5. CALCIUM CARBONATE [Concomitant]
     Dosage: 500 MG/DAY
     Route: 048
  6. METRONIDAZOLE [Concomitant]
     Route: 065
  7. PANTOPRAZOLE [Suspect]
     Indication: HELICOBACTER GASTRITIS
     Dosage: 40 MG/DAY
     Route: 065
  8. PANTOPRAZOLE [Suspect]
     Dosage: 80 MG/DAY
     Route: 065
  9. COLECALCIFEROL [Concomitant]
     Dosage: 1000 IU/DAY
     Route: 048

REACTIONS (5)
  - HEADACHE [None]
  - HYPERTENSION [None]
  - HYPOCALCAEMIA [None]
  - HYPOMAGNESAEMIA [None]
  - PARAESTHESIA [None]
